FAERS Safety Report 6692127-9 (Version None)
Quarter: 2010Q2

REPORT INFORMATION
  Report Type: 
  Country: None (occurrence: None)
  Receive Date: 20100422
  Receipt Date: 20090330
  Transmission Date: 20101027
  Serious: No
  Sender: FDA-Public Use
  Company Number: US-ASTRAZENECA-2009UW08020

PATIENT
  Age: 16253 Day
  Sex: Male

DRUGS (1)
  1. TOPROL-XL [Suspect]
     Route: 048
     Dates: end: 20090301

REACTIONS (2)
  - CARDIAC FLUTTER [None]
  - PALPITATIONS [None]
